FAERS Safety Report 17098768 (Version 1)
Quarter: 2019Q4

REPORT INFORMATION
  Report Type: Spontaneous
  Country: BE (occurrence: BE)
  Receive Date: 20191202
  Receipt Date: 20191202
  Transmission Date: 20200122
  Serious: Yes (Other)
  Sender: FDA-Public Use
  Company Number: BE-METUCHEN-STN-2019-0331

PATIENT
  Age: 52 Year
  Sex: Male

DRUGS (2)
  1. SPEDRA (AVANAFIL) TABLETS [Suspect]
     Active Substance: AVANAFIL
     Indication: PROPHYLAXIS
     Dosage: ONE HALF OF A 50MG TABLET (25MG)
     Route: 048
     Dates: start: 201807
  2. VALSARTAN. [Concomitant]
     Active Substance: VALSARTAN
     Indication: HYPERTENSION
     Dosage: 160MG

REACTIONS (4)
  - Vision blurred [Unknown]
  - Vitreous detachment [Unknown]
  - Off label use [Not Recovered/Not Resolved]
  - Product use in unapproved indication [Not Recovered/Not Resolved]

NARRATIVE: CASE EVENT DATE: 201807
